FAERS Safety Report 5722601-0 (Version None)
Quarter: 2008Q2

REPORT INFORMATION
  Report Type: 
  Country: None (occurrence: None)
  Receive Date: 20080429
  Receipt Date: 20080117
  Transmission Date: 20081010
  Serious: No
  Sender: FDA-Public Use
  Company Number: US-ASTRAZENECA-2007UW23495

PATIENT
  Age: 74 Year
  Sex: Female

DRUGS (4)
  1. NEXIUM [Suspect]
     Indication: GASTRIC PH DECREASED
     Route: 048
     Dates: start: 20070901
  2. NORVASC [Concomitant]
  3. ZOCOR [Concomitant]
  4. EVISTA [Concomitant]

REACTIONS (3)
  - ABDOMINAL DISTENSION [None]
  - CONTUSION [None]
  - PAIN IN EXTREMITY [None]
